FAERS Safety Report 6506110-7 (Version None)
Quarter: 2009Q4

REPORT INFORMATION
  Report Type: 
  Country: None (occurrence: None)
  Receive Date: 20091217
  Receipt Date: 20091217
  Transmission Date: 20100525
  Serious: Yes (Hospitalization)
  Sender: FDA-Public Use
  Company Number: None

PATIENT
  Age: 33 Year
  Sex: Female
  Weight: 97.5234 kg

DRUGS (1)
  1. MUCINEX DM [Suspect]
     Indication: BRONCHITIS
     Dosage: 1 TABLET 12 HRS PO
     Route: 048
     Dates: start: 20091212, end: 20091212

REACTIONS (4)
  - DYSPNOEA [None]
  - ERYTHEMA [None]
  - HYPOAESTHESIA [None]
  - HYPOAESTHESIA ORAL [None]
